FAERS Safety Report 6264156 (Version 19)
Quarter: 2013Q3

REPORT INFORMATION
  Report Type: Spontaneous
  Country: US (occurrence: US)
  Receive Date: 20070319
  Receipt Date: 20130924
  Transmission Date: 20140515
  Serious: Yes (Death, Hospitalization, Disabling, Other)
  Sender: FDA-Public Use
  Company Number: PHEH2007US02905

PATIENT
  Sex: Male

DRUGS (51)
  1. AREDIA [Suspect]
     Route: 042
     Dates: start: 2002, end: 200212
  2. ZOMETA [Suspect]
     Route: 042
     Dates: start: 200301, end: 200412
  3. FLOMAX ^BOEHRINGER INGELHEIM^ [Suspect]
  4. TESTOSTERONE [Concomitant]
  5. DITROPAN                                /SCH/ [Concomitant]
  6. VALIUM [Concomitant]
  7. COLCHICINE [Concomitant]
  8. ELAVIL [Concomitant]
  9. ZOLOFT [Concomitant]
  10. DOXYCYCLINE [Concomitant]
  11. CHEMOTHERAPEUTICS NOS [Concomitant]
     Dates: start: 200312
  12. MULTIVITAMINS [Concomitant]
  13. SAW PALMETTO [Concomitant]
  14. VITAMIN A [Concomitant]
  15. ZOFRAN [Concomitant]
  16. DILAUDID [Concomitant]
  17. ZOSYN [Concomitant]
  18. LEVAQUIN [Concomitant]
     Dosage: 750 MG,
     Route: 048
  19. OXYCODONE [Concomitant]
     Dosage: 15 MG,
  20. ACYCLOVIR [Concomitant]
     Dosage: 400 MG,
  21. OMEPRAZOLE [Concomitant]
     Dosage: 20 MG,
  22. TYLENOL [Concomitant]
     Dosage: 325 MG,
  23. FAMVIR                                  /UNK/ [Concomitant]
     Dosage: 500 MG,
  24. LASIX [Concomitant]
     Dosage: 40 MG,
  25. SENOKOT-S [Concomitant]
  26. BECLOMETHASONE AQUEOUS [Concomitant]
     Dosage: 5 MG,
  27. PROTONIX ^PHARMACIA^ [Concomitant]
     Dosage: 40 MG,
  28. SOLU-MEDROL [Concomitant]
  29. NYSTATIN [Concomitant]
  30. MOTRIN [Concomitant]
     Dosage: 400 MG,
  31. VANCOMYCIN [Concomitant]
  32. AMBIEN [Concomitant]
  33. MAGIC MOUTHWASH [Concomitant]
  34. ALLOPURINOL [Concomitant]
  35. BACLOFEN [Concomitant]
     Dosage: 10 MG,
  36. DIFLUCAN [Concomitant]
     Dosage: 100 MG,
  37. UROXATRAL [Concomitant]
     Dosage: 10 MG,
  38. DEXAMETHASONE [Concomitant]
  39. GABAPENTIN [Concomitant]
  40. CHLORHEXIDINE [Concomitant]
  41. TETRACYCLINE [Concomitant]
  42. CLEOCIN [Concomitant]
  43. VICODIN [Concomitant]
  44. RANESTOL [Concomitant]
  45. FLEXERIL [Concomitant]
     Dosage: 10 MG, UNK
  46. REVLIMID [Concomitant]
  47. CYCLOPHOSPHAMIDE [Concomitant]
  48. AMITRIPTYLINE [Concomitant]
  49. FLECTOR 13% [Concomitant]
  50. AUGMENTIN [Concomitant]
  51. PROCARDIA [Concomitant]

REACTIONS (108)
  - Plasma cell myeloma in remission [Fatal]
  - Pneumonia [Unknown]
  - Pulmonary embolism [Unknown]
  - Pyrexia [Recovered/Resolved]
  - Dyspnoea exertional [Unknown]
  - Productive cough [Recovering/Resolving]
  - Neuropathy peripheral [Unknown]
  - Osteonecrosis of jaw [Unknown]
  - General physical health deterioration [Unknown]
  - Pain [Unknown]
  - Anxiety [Unknown]
  - Decreased interest [Unknown]
  - Actinomycosis [Unknown]
  - Impaired healing [Unknown]
  - Pain in jaw [Unknown]
  - Dental caries [Unknown]
  - Tooth infection [Unknown]
  - Malignant melanoma [Unknown]
  - Paraproteinaemia [Unknown]
  - Rib fracture [Unknown]
  - Gingival recession [Unknown]
  - Lower extremity mass [Unknown]
  - Pain in extremity [Unknown]
  - Meniere^s disease [Unknown]
  - Metastases to bone [Unknown]
  - Renal cyst [Unknown]
  - Pericardial effusion [Unknown]
  - Cervical spinal stenosis [Unknown]
  - Left atrial dilatation [Unknown]
  - Cardiac murmur [Unknown]
  - Aortic valve sclerosis [Unknown]
  - Carpal tunnel syndrome [Unknown]
  - Renal aneurysm [Unknown]
  - Myelodysplastic syndrome [Unknown]
  - Pancytopenia [Unknown]
  - Haemoglobin decreased [Unknown]
  - Anaemia [Unknown]
  - Thrombocytopenia [Unknown]
  - Leukocytosis [Recovered/Resolved]
  - Red blood cell count decreased [Unknown]
  - Psoriasis [Unknown]
  - Rash [Unknown]
  - Diabetes mellitus [Unknown]
  - Osteomyelitis [Unknown]
  - Heterotaxia [Unknown]
  - Tooth fracture [Unknown]
  - Bone loss [Unknown]
  - Gingival bleeding [Unknown]
  - Nervousness [Unknown]
  - Nephrolithiasis [Unknown]
  - Primary sequestrum [Unknown]
  - Sciatica [Unknown]
  - Bursitis [Unknown]
  - Rotator cuff syndrome [Unknown]
  - Gastrointestinal tract irritation [Unknown]
  - Scleritis [Unknown]
  - Depression [Unknown]
  - Hypogonadism [Unknown]
  - Osteoarthritis [Unknown]
  - Haemorrhoids [Unknown]
  - Sexual dysfunction [Unknown]
  - Haematuria [Unknown]
  - Osteopenia [Unknown]
  - Intervertebral disc displacement [Unknown]
  - Benign prostatic hyperplasia [Unknown]
  - Prostatitis [Unknown]
  - Herpes zoster [Unknown]
  - Sinus disorder [Unknown]
  - Tonsillitis [Unknown]
  - Oral herpes [Unknown]
  - Tendonitis [Unknown]
  - Hypophosphataemia [Unknown]
  - Dysphagia [Unknown]
  - Arthralgia [Unknown]
  - Facial pain [Unknown]
  - Myalgia [Unknown]
  - Hypertension [Unknown]
  - Aspartate aminotransferase increased [Recovering/Resolving]
  - Musculoskeletal pain [Unknown]
  - Headache [Unknown]
  - Oral candidiasis [Unknown]
  - Fatigue [Unknown]
  - Oropharyngeal pain [Unknown]
  - Dizziness [Unknown]
  - Hypokalaemia [Unknown]
  - Insomnia [Unknown]
  - Hyponatraemia [Recovered/Resolved]
  - Oedema peripheral [Unknown]
  - Beta haemolytic streptococcal infection [Unknown]
  - Transaminases increased [Unknown]
  - Hypogammaglobulinaemia [Unknown]
  - Intervertebral disc degeneration [Unknown]
  - Ocular hyperaemia [Unknown]
  - Confusional state [Unknown]
  - Paraesthesia oral [Unknown]
  - Mouth ulceration [Unknown]
  - Cataract [Unknown]
  - Lymphadenopathy [Unknown]
  - Musculoskeletal chest pain [Unknown]
  - Osteolysis [Unknown]
  - Renal disorder [Unknown]
  - Soft tissue disorder [Unknown]
  - Mass [Unknown]
  - Abdominal distension [Unknown]
  - Back pain [Unknown]
  - Dermatitis [Unknown]
  - Blister [Unknown]
  - Skin cancer [Unknown]
